FAERS Safety Report 18927761 (Version 2)
Quarter: 2021Q1

REPORT INFORMATION
  Report Type: Spontaneous
  Country: US (occurrence: US)
  Receive Date: 20210223
  Receipt Date: 20210305
  Transmission Date: 20210420
  Serious: Yes (Hospitalization, Other)
  Sender: FDA-Public Use
  Company Number: US-PFIZER INC-03H-163-0214915-00

PATIENT
  Age: 56 Year
  Sex: Female

DRUGS (1)
  1. LORAZEPAM. [Suspect]
     Active Substance: LORAZEPAM
     Indication: ALCOHOL WITHDRAWAL SYNDROME
     Dosage: 432 MG
     Route: 042
     Dates: start: 20020301, end: 20020301

REACTIONS (7)
  - Off label use [Unknown]
  - Tachycardia [Unknown]
  - Agitation [Unknown]
  - Overdose [Unknown]
  - Toxicity to various agents [Unknown]
  - Confusional state [Recovered/Resolved]
  - Hypertension [Unknown]

NARRATIVE: CASE EVENT DATE: 200203
